FAERS Safety Report 11796575 (Version 1)
Quarter: 2015Q4

REPORT INFORMATION
  Report Type: Spontaneous
  Country: FR (occurrence: FR)
  Receive Date: 20151203
  Receipt Date: 20151203
  Transmission Date: 20160305
  Serious: Yes (Hospitalization)
  Sender: FDA-Public Use
  Company Number: FR-ACORDA-ACO_119667_2015

PATIENT
  Age: 40 Year
  Sex: Female

DRUGS (5)
  1. QUTENZA [Suspect]
     Active Substance: CAPSAICIN
     Indication: NEURALGIA
     Dosage: UNK, UNKNOWN FREQ.
     Route: 065
  2. SKENAN [Concomitant]
     Active Substance: MORPHINE SULFATE
     Indication: PRODUCT USED FOR UNKNOWN INDICATION
     Dosage: UNK
     Route: 065
  3. QUTENZA [Suspect]
     Active Substance: CAPSAICIN
     Dosage: UNK, UNKNOWN FREQ.
     Route: 065
     Dates: start: 20151117, end: 20151117
  4. LEVOTHYROX [Concomitant]
     Active Substance: LEVOTHYROXINE
     Indication: PRODUCT USED FOR UNKNOWN INDICATION
     Dosage: UNK
     Route: 065
  5. QUTENZA [Suspect]
     Active Substance: CAPSAICIN
     Dosage: UNK, UNKNOWN FREQ.
     Route: 065

REACTIONS (3)
  - Application site pain [Unknown]
  - Application site warmth [Unknown]
  - Pyrexia [Unknown]

NARRATIVE: CASE EVENT DATE: 20151117
